FAERS Safety Report 6140496-0 (Version None)
Quarter: 2009Q1

REPORT INFORMATION
  Report Type: 
  Country: None (occurrence: None)
  Receive Date: 20090331
  Receipt Date: 20090317
  Transmission Date: 20090719
  Serious: Yes (Hospitalization)
  Sender: FDA-Public Use
  Company Number: 2009000828

PATIENT
  Age: 65 Year
  Weight: 63 kg

DRUGS (5)
  1. ERLOTINIB (ERLOTINIB) (TABLET) (ERLOTINIB) [Suspect]
     Indication: OESOPHAGEAL CARCINOMA
     Dosage: (100 MG,QD),ORAL
     Route: 048
     Dates: start: 20090210
  2. BEVACIZUMAB (INJECTION FOR INFUSION) [Suspect]
     Indication: OESOPHAGEAL CARCINOMA
     Dosage: (15 MG/KG,DAYS 1 + 22),INTRAVENOUS
     Route: 042
     Dates: start: 20090210
  3. TAXOL [Suspect]
     Indication: OESOPHAGEAL CARCINOMA
     Dosage: (200 MG/M2),INTRAVENOUS
     Route: 042
     Dates: start: 20090210
  4. CARBOPLATIN [Suspect]
     Indication: OESOPHAGEAL CARCINOMA
     Dosage: (5 AUC; DAYS 1 + 22),INTRAVENOUS
     Route: 042
     Dates: start: 20090210
  5. FLUOROURACIL [Suspect]
     Indication: OESOPHAGEAL CARCINOMA
     Dosage: (1575 MG/M2),INTRAVENOUS
     Route: 042
     Dates: start: 20090210

REACTIONS (6)
  - BLOOD SODIUM DECREASED [None]
  - DEHYDRATION [None]
  - DYSPHAGIA [None]
  - MUCOSAL INFLAMMATION [None]
  - NAUSEA [None]
  - WHITE BLOOD CELL COUNT DECREASED [None]
